FAERS Safety Report 7640273-5 (Version None)
Quarter: 2011Q3

REPORT INFORMATION
  Report Type: 
  Country: None (occurrence: None)
  Receive Date: 20110728
  Receipt Date: 20110627
  Transmission Date: 20111222
  Serious: No
  Sender: FDA-Public Use
  Company Number: US-BAYER-2011-057776

PATIENT
  Age: 69 Year
  Sex: Male
  Weight: 76 kg

DRUGS (6)
  1. GLYBURIDE [Concomitant]
  2. LISINOPRIL [Concomitant]
  3. MULTI-VITAMIN [Concomitant]
  4. ALEVE (CAPLET) [Suspect]
     Indication: ARTHRALGIA
     Dosage: 220 MG, TID
     Route: 048
     Dates: start: 20110606, end: 20110626
  5. METFORMIN HCL [Concomitant]
  6. GEMFIBROZIL [Concomitant]

REACTIONS (1)
  - ARTHRALGIA [None]
